FAERS Safety Report 20025598 (Version 4)
Quarter: 2021Q4

REPORT INFORMATION
  Report Type: Report from Study
  Country: DK (occurrence: DK)
  Receive Date: 20211102
  Receipt Date: 20211229
  Transmission Date: 20220303
  Serious: Yes (Life-Threatening, Hospitalization, Other)
  Sender: FDA-Public Use
  Company Number: DK-NOVARTISPH-NVSC2021DK246488

PATIENT
  Age: 61 Year
  Sex: Female

DRUGS (1)
  1. CAPMATINIB [Suspect]
     Active Substance: CAPMATINIB
     Indication: Cholangiocarcinoma
     Dosage: 400 MG, BID
     Route: 065
     Dates: start: 20210928, end: 20211026

REACTIONS (4)
  - Pulmonary embolism [Not Recovered/Not Resolved]
  - Cerebrovascular accident [Recovering/Resolving]
  - Vision blurred [Not Recovered/Not Resolved]
  - Infarction [Recovering/Resolving]

NARRATIVE: CASE EVENT DATE: 20211022
